FAERS Safety Report 4722133-2 (Version None)
Quarter: 2005Q3

REPORT INFORMATION
  Report Type: 
  Country: None (occurrence: None)
  Receive Date: 20050722
  Receipt Date: 20040802
  Transmission Date: 20060218
  Serious: No
  Sender: FDA-Public Use
  Company Number: US-GLAXOSMITHKLINE-A0520559A

PATIENT
  Age: 40 Year
  Sex: Male

DRUGS (4)
  1. AVANDIA [Suspect]
     Dosage: 4MG TWICE PER DAY
     Route: 048
     Dates: start: 20000101
  2. LEVOXYL [Concomitant]
  3. GLUCOVANCE [Concomitant]
  4. LISINOPRIL [Concomitant]

REACTIONS (4)
  - CHROMATURIA [None]
  - FATIGUE [None]
  - JOINT SWELLING [None]
  - WEIGHT INCREASED [None]
